FAERS Safety Report 10234599 (Version 2)
Quarter: 2014Q3

REPORT INFORMATION
  Report Type: Spontaneous
  Country: CA (occurrence: CA)
  Receive Date: 20140613
  Receipt Date: 20140912
  Transmission Date: 20150326
  Serious: Yes (Hospitalization)
  Sender: FDA-Public Use
  Company Number: CA-ALVOGEN-2014AL000854

PATIENT
  Age: 66 Year
  Sex: Female

DRUGS (10)
  1. MACROBID [Suspect]
     Active Substance: NITROFURANTOIN\NITROFURANTOIN MONOHYDRATE
     Indication: URINARY TRACT INFECTION
     Route: 048
  2. TASIGNA [Suspect]
     Active Substance: NILOTINIB
     Indication: CHRONIC MYELOID LEUKAEMIA
     Route: 048
     Dates: start: 200901
  3. METFORMIN [Concomitant]
     Active Substance: METFORMIN HYDROCHLORIDE
     Indication: PRODUCT USED FOR UNKNOWN INDICATION
  4. VENTOLINE /00139501/ [Concomitant]
     Indication: PRODUCT USED FOR UNKNOWN INDICATION
  5. SEREVENT [Concomitant]
     Active Substance: SALMETEROL XINAFOATE
     Indication: PRODUCT USED FOR UNKNOWN INDICATION
  6. CIPRO /00697201/ [Suspect]
     Active Substance: CIPROFLOXACIN
     Indication: CYSTITIS
  7. CIPRO /00697201/ [Suspect]
     Active Substance: CIPROFLOXACIN
     Indication: CYSTITIS
  8. PREGABALIN. [Concomitant]
     Active Substance: PREGABALIN
     Indication: PRODUCT USED FOR UNKNOWN INDICATION
  9. DIAMICRON [Concomitant]
     Active Substance: GLICLAZIDE
     Indication: PRODUCT USED FOR UNKNOWN INDICATION
  10. JANUVIA [Concomitant]
     Active Substance: SITAGLIPTIN PHOSPHATE
     Indication: PRODUCT USED FOR UNKNOWN INDICATION

REACTIONS (15)
  - Urinary retention [Unknown]
  - Vulvovaginal burning sensation [Unknown]
  - Palpitations [Recovered/Resolved]
  - Pneumonia [Unknown]
  - Cellulitis [Unknown]
  - Cystitis [Recovering/Resolving]
  - Acne [Unknown]
  - Back pain [Unknown]
  - Constipation [Unknown]
  - Local swelling [Unknown]
  - Blood potassium decreased [Unknown]
  - Abdominal pain [Unknown]
  - Vaginal infection [Unknown]
  - Vulvovaginal dryness [Unknown]
  - Erythema [Unknown]

NARRATIVE: CASE EVENT DATE: 20140214
